FAERS Safety Report 26118175 (Version 1)
Quarter: 2025Q4

REPORT INFORMATION
  Report Type: Spontaneous
  Country: JP (occurrence: JP)
  Receive Date: 20251203
  Receipt Date: 20251203
  Transmission Date: 20260118
  Serious: Yes (Death, Hospitalization, Other)
  Sender: B. BRAUN MEDICAL INC.
  Company Number: JP-B. Braun Medical Inc.-JP-BBM-202504528

PATIENT
  Age: 74 Year
  Sex: Male

DRUGS (1)
  1. ACETAMINOPHEN [Suspect]
     Active Substance: ACETAMINOPHEN
     Indication: Rib fracture

REACTIONS (2)
  - Drug reaction with eosinophilia and systemic symptoms [Fatal]
  - Hepatic failure [Fatal]
